FAERS Safety Report 9696619 (Version 1)
Quarter: 2013Q4

REPORT INFORMATION
  Report Type: Spontaneous
  Country: US (occurrence: US)
  Receive Date: 20131119
  Receipt Date: 20131119
  Transmission Date: 20140711
  Serious: Yes (Other)
  Sender: FDA-Public Use
  Company Number: US-GILEAD-2013-0087808

PATIENT
  Sex: Male

DRUGS (2)
  1. LETAIRIS [Suspect]
     Indication: PRODUCT USED FOR UNKNOWN INDICATION
     Dosage: 5 MG, QD
     Route: 048
     Dates: start: 20120419
  2. ADCIRCA [Concomitant]

REACTIONS (4)
  - Single functional kidney [Unknown]
  - Retinal operation [Unknown]
  - Hernia [Unknown]
  - Dyspnoea [Unknown]
